FAERS Safety Report 11734128 (Version 2)
Quarter: 2015Q4

REPORT INFORMATION
  Report Type: Report from Study
  Country: FR (occurrence: FR)
  Receive Date: 20151113
  Receipt Date: 20151126
  Transmission Date: 20160304
  Serious: No
  Sender: FDA-Public Use
  Company Number: FR-ROCHE-1525975

PATIENT
  Age: 73 Year
  Sex: Male
  Weight: 73 kg

DRUGS (29)
  1. OBINUTUZUMAB [Suspect]
     Active Substance: OBINUTUZUMAB
     Dosage: MOST RECENT DOSE PRIOR TO AE: 29/JAN/2015
     Route: 042
     Dates: start: 20140129
  2. OBINUTUZUMAB [Suspect]
     Active Substance: OBINUTUZUMAB
     Route: 042
     Dates: start: 20140211
  3. NOVONORM [Concomitant]
     Active Substance: REPAGLINIDE
     Route: 048
     Dates: start: 20140131
  4. FLUDEX (FRANCE) [Concomitant]
     Indication: HYPERTENSION
     Route: 048
     Dates: end: 20140127
  5. POLARAMINE [Concomitant]
     Active Substance: DEXCHLORPHENIRAMINE MALEATE
     Indication: PROPHYLAXIS
     Route: 042
     Dates: start: 20140128, end: 20140616
  6. PLAVIX [Concomitant]
     Active Substance: CLOPIDOGREL BISULFATE
     Indication: MYOCARDIAL INFARCTION
     Route: 048
  7. COVERAM [Concomitant]
     Active Substance: AMLODIPINE\PERINDOPRIL
     Indication: HYPERTENSION
     Route: 048
     Dates: end: 20140127
  8. STAGID [Concomitant]
     Active Substance: METFORMIN PAMOATE
     Indication: TYPE 2 DIABETES MELLITUS
     Route: 048
     Dates: end: 20140128
  9. STAGID [Concomitant]
     Active Substance: METFORMIN PAMOATE
     Route: 048
     Dates: start: 20140131, end: 20140219
  10. BISOPROLOL [Concomitant]
     Active Substance: BISOPROLOL
     Indication: HYPERTENSION
     Route: 048
  11. OBINUTUZUMAB [Suspect]
     Active Substance: OBINUTUZUMAB
     Indication: CHRONIC LYMPHOCYTIC LEUKAEMIA
     Route: 042
     Dates: start: 20140128
  12. COVERAM [Concomitant]
     Active Substance: AMLODIPINE\PERINDOPRIL
     Route: 048
     Dates: start: 20140203
  13. POLARAMINE [Concomitant]
     Active Substance: DEXCHLORPHENIRAMINE MALEATE
     Route: 042
     Dates: start: 20140211, end: 20140211
  14. FASTURTEC [Concomitant]
     Active Substance: RASBURICASE
     Indication: PROPHYLAXIS
     Route: 042
     Dates: start: 20140128, end: 20140130
  15. INSULINE [Concomitant]
     Active Substance: INSULIN NOS
     Route: 058
     Dates: start: 20140129, end: 20140130
  16. OBINUTUZUMAB [Suspect]
     Active Substance: OBINUTUZUMAB
     Route: 042
     Dates: start: 20140224
  17. SOLU-MEDROL [Concomitant]
     Active Substance: METHYLPREDNISOLONE SODIUM SUCCINATE
     Indication: PROPHYLAXIS
     Route: 042
     Dates: start: 20140128
  18. LANTUS [Concomitant]
     Active Substance: INSULIN GLARGINE
     Indication: TYPE 2 DIABETES MELLITUS
     Route: 042
     Dates: start: 20140129, end: 20140130
  19. OBINUTUZUMAB [Suspect]
     Active Substance: OBINUTUZUMAB
     Route: 042
     Dates: start: 20140204
  20. TAHOR [Concomitant]
     Active Substance: ATORVASTATIN CALCIUM
     Indication: DYSLIPIDAEMIA
     Route: 048
  21. NOVONORM [Concomitant]
     Active Substance: REPAGLINIDE
     Indication: TYPE 2 DIABETES MELLITUS
     Route: 048
     Dates: end: 20140128
  22. NOVONORM [Concomitant]
     Active Substance: REPAGLINIDE
     Route: 048
     Dates: start: 20140129, end: 20140129
  23. ZOPHREN [Concomitant]
     Active Substance: ONDANSETRON
     Indication: PROPHYLAXIS
     Route: 042
     Dates: start: 20140128, end: 20140131
  24. BENDAMUSTINE [Suspect]
     Active Substance: BENDAMUSTINE
     Indication: CHRONIC LYMPHOCYTIC LEUKAEMIA
     Dosage: MOST RECENT DOSE PRIOR TO AE: 28/JAN/2014.?DOSE SPLIT BETWEEN 28/JAN/2014 AND 29/JAN/2014.?DOSE DELA
     Route: 042
     Dates: start: 20140128
  25. NOVONORM [Concomitant]
     Active Substance: REPAGLINIDE
     Route: 048
     Dates: start: 20140130, end: 20140130
  26. PARACETAMOL [Concomitant]
     Active Substance: ACETAMINOPHEN
     Indication: PROPHYLAXIS
     Route: 042
     Dates: start: 20140128, end: 20140616
  27. STAGID [Concomitant]
     Active Substance: METFORMIN PAMOATE
     Route: 048
     Dates: start: 20140129, end: 20140130
  28. FLUDEX (FRANCE) [Concomitant]
     Route: 048
     Dates: start: 20140203
  29. FASTURTEC [Concomitant]
     Active Substance: RASBURICASE
     Route: 042
     Dates: start: 20140204, end: 20140204

REACTIONS (1)
  - Tumour lysis syndrome [Recovered/Resolved]

NARRATIVE: CASE EVENT DATE: 20140129
